FAERS Safety Report 6696777-5 (Version None)
Quarter: 2010Q2

REPORT INFORMATION
  Report Type: 
  Country: None (occurrence: None)
  Receive Date: 20100426
  Receipt Date: 20100423
  Transmission Date: 20101027
  Serious: Yes (Hospitalization)
  Sender: FDA-Public Use
  Company Number: US-ROXANE LABORATORIES, INC.-2008-BP-12843RO

PATIENT
  Age: 9 Year
  Sex: Female

DRUGS (15)
  1. MIDAZOLAM HCL [Suspect]
     Indication: STATUS EPILEPTICUS
     Route: 042
  2. OXCARBAZEPINE [Suspect]
     Indication: STATUS EPILEPTICUS
  3. LEVETIRACETAM [Suspect]
     Indication: STATUS EPILEPTICUS
  4. LAMOTRIGINE [Suspect]
     Indication: STATUS EPILEPTICUS
  5. TOPIRAMATE [Suspect]
     Indication: STATUS EPILEPTICUS
  6. FOSPHENYTOIN [Suspect]
     Indication: STATUS EPILEPTICUS
  7. PHENOBARBITAL [Suspect]
     Indication: STATUS EPILEPTICUS
  8. DOPAMINE HCL [Suspect]
     Indication: HYPOTENSION
  9. VALPROIC ACID [Suspect]
     Indication: STATUS EPILEPTICUS
  10. PHENYTOIN [Suspect]
     Indication: STATUS EPILEPTICUS
  11. PREGABALIN [Suspect]
     Indication: STATUS EPILEPTICUS
  12. EPINEPHRINE [Concomitant]
     Indication: BLOOD PRESSURE ABNORMAL
  13. PHENYLEPHRINE [Concomitant]
     Indication: BLOOD PRESSURE ABNORMAL
  14. VASOPRESSOR [Concomitant]
     Indication: METABOLIC ACIDOSIS
  15. INOTROPE [Concomitant]
     Indication: METABOLIC ACIDOSIS

REACTIONS (3)
  - DRUG INEFFECTIVE [None]
  - HAEMODYNAMIC INSTABILITY [None]
  - METABOLIC ACIDOSIS [None]
